FAERS Safety Report 5630073-X (Version None)
Quarter: 2008Q1

REPORT INFORMATION
  Report Type: 
  Country: None (occurrence: None)
  Receive Date: 20080218
  Receipt Date: 20080208
  Transmission Date: 20080703
  Serious: Yes (Disabling)
  Sender: FDA-Public Use
  Company Number: PHBS2008IT01990

PATIENT
  Sex: Female

DRUGS (1)
  1. ZOMETA [Suspect]
     Dates: start: 20040625, end: 20060518

REACTIONS (3)
  - INJURY [None]
  - MASTICATION DISORDER [None]
  - OSTEONECROSIS [None]
